FAERS Safety Report 5464621-X (Version None)
Quarter: 2007Q3

REPORT INFORMATION
  Report Type: 
  Country: None (occurrence: None)
  Receive Date: 20070921
  Receipt Date: 20070912
  Transmission Date: 20080115
  Serious: Yes (Hospitalization)
  Sender: FDA-Public Use
  Company Number: US-ABBOTT-07P-163-0416871-00

PATIENT
  Sex: Female
  Weight: 107 kg

DRUGS (8)
  1. NIASPAN [Suspect]
     Indication: BLOOD PRESSURE
     Route: 048
     Dates: start: 20070827, end: 20070904
  2. NIASPAN [Suspect]
     Indication: BLOOD TRIGLYCERIDES
  3. HYDROCHLOROTHIAZIDE [Concomitant]
     Indication: DIURETIC THERAPY
  4. LOSARTAN POTASSIUM [Concomitant]
     Indication: DRUG USE FOR UNKNOWN INDICATION
  5. ASPIRIN [Concomitant]
     Indication: DRUG USE FOR UNKNOWN INDICATION
  6. ATORVASTATIN CALCIUM [Concomitant]
     Indication: BLOOD CHOLESTEROL
  7. ULTASE [Concomitant]
     Indication: DRUG USE FOR UNKNOWN INDICATION
  8. INSULIN [Concomitant]
     Indication: TYPE 2 DIABETES MELLITUS

REACTIONS (8)
  - ANXIETY [None]
  - DIZZINESS [None]
  - DYSPNOEA [None]
  - FEELING HOT [None]
  - INFECTION [None]
  - PARAESTHESIA [None]
  - SKIN BURNING SENSATION [None]
  - WHITE BLOOD CELL COUNT INCREASED [None]
